FAERS Safety Report 9378418 (Version 3)
Quarter: 2013Q3

REPORT INFORMATION
  Report Type: Report from Study
  Country: AU (occurrence: AU)
  Receive Date: 20130701
  Receipt Date: 20130826
  Transmission Date: 20140515
  Serious: Yes (Hospitalization)
  Sender: FDA-Public Use
  Company Number: AU-ELI_LILLY_AND_COMPANY-AU201306006610

PATIENT
  Age: 77 Year
  Sex: Male
  Weight: 72.5 kg

DRUGS (5)
  1. TERIPARATIDE [Suspect]
     Indication: OSTEOPOROSIS
     Dosage: UNK, QD
     Route: 058
     Dates: start: 20130315, end: 20130805
  2. CALTRATE [Suspect]
     Indication: OSTEOPOROSIS
     Dosage: UNK
     Dates: end: 20130614
  3. THYROXINE [Concomitant]
  4. STRONTIUM [Concomitant]
     Dosage: UNK, UNKNOWN
     Route: 065
  5. TESTOSTERONE [Concomitant]
     Dosage: UNK, UNKNOWN
     Route: 065

REACTIONS (1)
  - Nephrolithiasis [Unknown]
